FAERS Safety Report 16830121 (Version 1)
Quarter: 2019Q3

REPORT INFORMATION
  Report Type: Report from Study
  Country: US (occurrence: US)
  Receive Date: 20190919
  Receipt Date: 20190919
  Transmission Date: 20191005
  Serious: Yes (Hospitalization)
  Sender: FDA-Public Use
  Company Number: US-ACTELION-A-NJ2019-194537

PATIENT
  Age: 69 Year
  Sex: Female

DRUGS (3)
  1. OPSUMIT [Suspect]
     Active Substance: MACITENTAN
     Indication: PULMONARY ARTERIAL HYPERTENSION
     Dosage: 10 MG, QD
     Route: 048
     Dates: start: 20190710, end: 201908
  2. UPTRAVI [Suspect]
     Active Substance: SELEXIPAG
     Indication: PULMONARY ARTERIAL HYPERTENSION
     Dosage: 200 MCG  IN AM AND 200 MCG IN PM
     Route: 048
     Dates: start: 20190801
  3. UPTRAVI [Suspect]
     Active Substance: SELEXIPAG
     Dosage: 400 MCG  IN AM AND 400 MCG IN PM
     Route: 048
     Dates: start: 20190808, end: 20190812

REACTIONS (12)
  - Influenza like illness [Recovered/Resolved]
  - Haemoglobin decreased [Recovering/Resolving]
  - Abdominal distension [Recovering/Resolving]
  - Headache [Recovered/Resolved]
  - Transfusion [Recovering/Resolving]
  - Anaemia [Recovering/Resolving]
  - Colonoscopy [Recovering/Resolving]
  - Pain in jaw [Recovered/Resolved]
  - Ill-defined disorder [Recovering/Resolving]
  - Oedema [Recovering/Resolving]
  - Chills [Recovered/Resolved]
  - Diarrhoea [Recovering/Resolving]

NARRATIVE: CASE EVENT DATE: 201908
